FAERS Safety Report 13692995 (Version 1)
Quarter: 2017Q2

REPORT INFORMATION
  Report Type: Spontaneous
  Country: US (occurrence: US)
  Receive Date: 20170627
  Receipt Date: 20170627
  Transmission Date: 20170830
  Serious: No
  Sender: FDA-Public Use
  Company Number: US-ASTRAZENECA-2008BM08579

PATIENT
  Age: 524 Month
  Sex: Female
  Weight: 197 kg

DRUGS (5)
  1. BYETTA [Suspect]
     Active Substance: EXENATIDE
     Indication: TYPE 2 DIABETES MELLITUS
     Route: 058
     Dates: start: 200805
  2. METFORMIN [Concomitant]
     Active Substance: METFORMIN HYDROCHLORIDE
     Indication: TYPE 2 DIABETES MELLITUS
     Dosage: UNK DF, UNK
  3. GLIPIZIDE. [Concomitant]
     Active Substance: GLIPIZIDE
     Indication: TYPE 2 DIABETES MELLITUS
     Dosage: UNK DF, UNK
     Dates: start: 2005
  4. INVOKANA [Concomitant]
     Active Substance: CANAGLIFLOZIN
  5. BYETTA [Suspect]
     Active Substance: EXENATIDE
     Indication: TYPE 2 DIABETES MELLITUS
     Route: 058
     Dates: start: 200804, end: 200805

REACTIONS (9)
  - Blood glucose increased [Unknown]
  - Weight decreased [Unknown]
  - Hyperchlorhydria [Unknown]
  - Vomiting [Unknown]
  - Drug dose omission [Unknown]
  - Nausea [Unknown]
  - Blood glucose decreased [Recovered/Resolved]
  - Early satiety [Unknown]
  - Vitamin D deficiency [Unknown]

NARRATIVE: CASE EVENT DATE: 200804
